FAERS Safety Report 7497670-0 (Version None)
Quarter: 2011Q2

REPORT INFORMATION
  Report Type: 
  Country: None (occurrence: None)
  Receive Date: 20110523
  Receipt Date: 20110512
  Transmission Date: 20111010
  Serious: Yes (Other)
  Sender: FDA-Public Use
  Company Number: CH-ASTRAZENECA-2011SE28642

PATIENT

DRUGS (7)
  1. COCAINE [Suspect]
     Dosage: 1 DOSAGE FORM , FIVE PER DAY
     Route: 064
     Dates: start: 20100616
  2. SEROQUEL [Suspect]
     Dosage: 200 MG TWO PER DAY
     Route: 064
  3. ALCOHOL [Suspect]
     Route: 064
     Dates: start: 20100616
  4. MOTILIUM [Suspect]
     Dosage: AS NECESSARY
     Route: 064
  5. CANNABIS [Suspect]
     Dosage: 1 DOSAGE FORM, FIVE PER DAY
     Route: 064
     Dates: start: 20100616
  6. CITALOPRAM HYDROBROMIDE [Suspect]
     Route: 064
  7. XANAX [Suspect]
     Route: 064

REACTIONS (2)
  - DRUG WITHDRAWAL SYNDROME NEONATAL [None]
  - POLYDACTYLY [None]
